FAERS Safety Report 10174796 (Version 2)
Quarter: 2014Q2

REPORT INFORMATION
  Report Type: Spontaneous
  Country: US (occurrence: US)
  Receive Date: 20140515
  Receipt Date: 20140617
  Transmission Date: 20141212
  Serious: Yes (Hospitalization)
  Sender: FDA-Public Use
  Company Number: US-FRI-1000067207

PATIENT
  Age: 77 Year
  Sex: Male

DRUGS (7)
  1. DALIRESP [Suspect]
     Dosage: 500 MCG
     Route: 048
     Dates: start: 201403, end: 201404
  2. DALIRESP [Suspect]
     Dosage: 250 MCG
     Route: 048
     Dates: start: 201404, end: 201405
  3. SPIRIVA [Concomitant]
  4. SYMBICORT [Concomitant]
  5. PROVENTIL [Concomitant]
  6. ANTIHYPERTENSIVE MEDS (NOS) [Concomitant]
  7. CHOLESTEROL MEDS (NOS) [Concomitant]

REACTIONS (5)
  - Neoplasm malignant [Not Recovered/Not Resolved]
  - Abdominal tenderness [Not Recovered/Not Resolved]
  - Chromaturia [Recovered/Resolved]
  - Diarrhoea [Recovered/Resolved]
  - Eructation [Not Recovered/Not Resolved]
